FAERS Safety Report 6841957-9 (Version None)
Quarter: 2010Q3

REPORT INFORMATION
  Report Type: 
  Country: None (occurrence: None)
  Receive Date: 20100714
  Receipt Date: 20070912
  Transmission Date: 20110219
  Serious: No
  Sender: FDA-Public Use
  Company Number: US-PFIZER INC-2007060171

PATIENT
  Sex: Female
  Weight: 62.6 kg

DRUGS (3)
  1. CHANTIX [Suspect]
     Indication: SMOKING CESSATION THERAPY
     Dates: start: 20070628
  2. CHANTIX [Suspect]
     Indication: TOBACCO ABUSE
  3. CELEXA [Concomitant]
     Indication: DEPRESSION

REACTIONS (3)
  - HYPERSOMNIA [None]
  - MUSCLE SPASMS [None]
  - RED BLOOD CELL SEDIMENTATION RATE INCREASED [None]
